FAERS Safety Report 15000850 (Version 1)
Quarter: 2018Q2

REPORT INFORMATION
  Report Type: Report from Study
  Country: US (occurrence: US)
  Receive Date: 20180612
  Receipt Date: 20180612
  Transmission Date: 20180711
  Serious: Yes (Hospitalization)
  Sender: FDA-Public Use
  Company Number: US-JNJFOC-20180535547

PATIENT
  Age: 70 Year
  Sex: Male

DRUGS (19)
  1. SODIUM BICARBONATE. [Concomitant]
     Active Substance: SODIUM BICARBONATE
  2. SEVELAMER [Concomitant]
     Active Substance: SEVELAMER
  3. IMBRUVICA [Suspect]
     Active Substance: IBRUTINIB
     Indication: CHRONIC LYMPHOCYTIC LEUKAEMIA
     Route: 048
     Dates: start: 20180428, end: 20180501
  4. FUROSEMIDE. [Concomitant]
     Active Substance: FUROSEMIDE
  5. DICLOFENAC SODIUM. [Concomitant]
     Active Substance: DICLOFENAC SODIUM
     Route: 065
  6. HUMALOG [Concomitant]
     Active Substance: INSULIN LISPRO
  7. IRON [Concomitant]
     Active Substance: IRON
  8. LORAZEPAM. [Concomitant]
     Active Substance: LORAZEPAM
  9. CHOLECALCIFEROL [Concomitant]
     Active Substance: CHOLECALCIFEROL
  10. DIPHENHYDRAMINE. [Concomitant]
     Active Substance: DIPHENHYDRAMINE
  11. ESCITALOPRAM OXALATE. [Concomitant]
     Active Substance: ESCITALOPRAM OXALATE
  12. IMBRUVICA [Concomitant]
     Active Substance: IBRUTINIB
     Indication: CHRONIC LYMPHOCYTIC LEUKAEMIA
     Route: 048
     Dates: start: 20180206, end: 20180427
  13. GEMFIBROZIL. [Concomitant]
     Active Substance: GEMFIBROZIL
  14. HYDROCODONE BITARTRATE AND ACETAMINOPHEN [Concomitant]
     Active Substance: ACETAMINOPHEN\HYDROCODONE BITARTRATE
  15. PREGABALIN. [Concomitant]
     Active Substance: PREGABALIN
  16. WARFARIN [Concomitant]
     Active Substance: WARFARIN
  17. ALBUTEROL. [Concomitant]
     Active Substance: ALBUTEROL
  18. FEXOFENADINE [Concomitant]
     Active Substance: FEXOFENADINE\FEXOFENADINE HYDROCHLORIDE
  19. LEVEMIR [Concomitant]
     Active Substance: INSULIN DETEMIR
     Route: 065

REACTIONS (2)
  - Pneumonia aspiration [Unknown]
  - Escherichia sepsis [Unknown]

NARRATIVE: CASE EVENT DATE: 20180501
